FAERS Safety Report 25698559 (Version 1)
Quarter: 2025Q3

REPORT INFORMATION
  Report Type: Spontaneous
  Country: GB (occurrence: GB)
  Receive Date: 20250819
  Receipt Date: 20250819
  Transmission Date: 20251020
  Serious: Yes (Other)
  Sender: ABBVIE
  Company Number: None

PATIENT
  Sex: Female

DRUGS (1)
  1. BOTOX [Suspect]
     Active Substance: ONABOTULINUMTOXINA
     Indication: Product used for unknown indication
     Route: 065

REACTIONS (6)
  - Medication error [Unknown]
  - Hyperhidrosis [Recovered/Resolved with Sequelae]
  - Swelling [Unknown]
  - Lip injury [Unknown]
  - Pain [Not Recovered/Not Resolved]
  - Multiple use of single-use product [Unknown]
